FAERS Safety Report 5248504-6 (Version None)
Quarter: 2007Q1

REPORT INFORMATION
  Report Type: 
  Country: None (occurrence: None)
  Receive Date: 20070227
  Receipt Date: 20070215
  Transmission Date: 20070707
  Serious: Yes (Life-Threatening, Hospitalization)
  Sender: FDA-Public Use
  Company Number: CH-PFIZER INC-2007009105

PATIENT
  Sex: Male
  Weight: 127 kg

DRUGS (7)
  1. SU-011,248 [Suspect]
     Indication: METASTATIC RENAL CELL CARCINOMA
     Route: 048
     Dates: start: 20061216, end: 20070114
  2. FRAXIPARINE [Suspect]
     Route: 058
     Dates: start: 20061208, end: 20070102
  3. STARLIX [Concomitant]
     Route: 048
  4. DIAMICRON [Concomitant]
     Route: 048
  5. ASPIRIN [Concomitant]
     Route: 048
  6. ATORVASTATIN CALCIUM [Concomitant]
     Route: 048
  7. COSAAR PLUS [Concomitant]
     Route: 048

REACTIONS (1)
  - CEREBRAL HAEMORRHAGE [None]
